FAERS Safety Report 15560290 (Version 5)
Quarter: 2019Q2

REPORT INFORMATION
  Report Type: Report from Study
  Country: BR (occurrence: BR)
  Receive Date: 20181029
  Receipt Date: 20190607
  Transmission Date: 20190711
  Serious: Yes (Death, Hospitalization, Other)
  Sender: FDA-Public Use
  Company Number: BR-B.I. PHARMACEUTICALS,INC./RIDGEFIELD-2018-BI-047528

PATIENT
  Age: 62 Year
  Sex: Male
  Weight: 100 kg

DRUGS (4)
  1. OFEV [Suspect]
     Active Substance: NINTEDANIB
     Route: 048
     Dates: start: 2018
  2. GLAUB [Concomitant]
     Active Substance: BRIMONIDINE TARTRATE
     Indication: GLAUCOMA
     Route: 031
  3. OFEV [Suspect]
     Active Substance: NINTEDANIB
     Indication: IDIOPATHIC PULMONARY FIBROSIS
     Route: 048
     Dates: start: 2017
  4. LOSARTAN. [Concomitant]
     Active Substance: LOSARTAN
     Indication: HYPERTENSION
     Route: 048

REACTIONS (13)
  - Septic shock [Fatal]
  - Fatigue [Not Recovered/Not Resolved]
  - Idiopathic pulmonary fibrosis [Fatal]
  - Respiratory failure [Fatal]
  - Fatigue [Not Recovered/Not Resolved]
  - Drug ineffective [Unknown]
  - Pulmonary hypertension [Fatal]
  - Oxygen saturation decreased [Recovered/Resolved]
  - Pneumonia [Fatal]
  - Pneumonia [Recovered/Resolved]
  - Hypertensive heart disease [Not Recovered/Not Resolved]
  - Urinary tract infection [Fatal]
  - Chest pain [Not Recovered/Not Resolved]

NARRATIVE: CASE EVENT DATE: 2017
